FAERS Safety Report 5938563-7 (Version None)
Quarter: 2008Q4

REPORT INFORMATION
  Report Type: 
  Country: None (occurrence: None)
  Receive Date: 20081103
  Receipt Date: 20081028
  Transmission Date: 20090506
  Serious: Yes (Other)
  Sender: FDA-Public Use
  Company Number: PHHY2008JP26460

PATIENT

DRUGS (4)
  1. DIOVAN [Suspect]
     Indication: HYPERTENSION
     Dosage: 80 MG, QD
     Route: 048
  2. AMARYL [Concomitant]
     Dosage: UNK
  3. URSO 250 [Concomitant]
     Dosage: UNK
  4. GLUCOBAY [Concomitant]
     Dosage: UNK

REACTIONS (1)
  - ANAEMIA HAEMOLYTIC AUTOIMMUNE [None]
